APPROVED DRUG PRODUCT: BETALIN 12
Active Ingredient: CYANOCOBALAMIN
Strength: 0.1MG/ML
Dosage Form/Route: INJECTABLE;INJECTION
Application: A080855 | Product #001
Applicant: ELI LILLY AND CO
Approved: Approved Prior to Jan 1, 1982 | RLD: No | RS: No | Type: DISCN